FAERS Safety Report 25982469 (Version 1)
Quarter: 2025Q4

REPORT INFORMATION
  Report Type: Spontaneous
  Country: GB (occurrence: GB)
  Receive Date: 20251031
  Receipt Date: 20251031
  Transmission Date: 20260118
  Serious: Yes (Other)
  Sender: CSL BEHRING
  Company Number: GB-BEH-2025223602

PATIENT
  Weight: 2.24 kg

DRUGS (3)
  1. HUMAN IMMUNOGLOBULIN G [Suspect]
     Active Substance: HUMAN IMMUNOGLOBULIN G
     Indication: Neonatal alloimmune thrombocytopenia
     Dosage: 2000 MG/KG, QW
     Route: 064
  2. ASPIRIN [Suspect]
     Active Substance: ASPIRIN
     Indication: Neonatal alloimmune thrombocytopenia
     Dosage: UNK
     Route: 064
  3. HYDROXYCHLOROQUINE [Suspect]
     Active Substance: HYDROXYCHLOROQUINE
     Indication: Neonatal alloimmune thrombocytopenia
     Dosage: UNK
     Route: 064

REACTIONS (3)
  - Thrombocytopenia neonatal [Unknown]
  - Foetal exposure during pregnancy [Unknown]
  - Off label use [Unknown]
